FAERS Safety Report 12803859 (Version 1)
Quarter: 2016Q4

REPORT INFORMATION
  Report Type: Report from Study
  Country: DE (occurrence: DE)
  Receive Date: 20161003
  Receipt Date: 20161003
  Transmission Date: 20170207
  Serious: Yes (Death, Hospitalization, Other)
  Sender: FDA-Public Use
  Company Number: DE-TEVA-684425GER

PATIENT
  Age: 54 Year
  Sex: Male

DRUGS (4)
  1. COPAXONE [Suspect]
     Active Substance: GLATIRAMER ACETATE
     Indication: MULTIPLE SCLEROSIS
     Route: 058
     Dates: start: 20151103
  2. FAMPYRA 10 MG [Concomitant]
     Indication: GAIT DISTURBANCE
     Dosage: 40 MILLIGRAM DAILY;
     Route: 048
     Dates: start: 20130307
  3. FAMPYRA 10 MG [Concomitant]
     Indication: MUSCLE SPASTICITY
  4. CARBAMAZEPIN 200 [Concomitant]
     Indication: NEURALGIA
     Dosage: 200 MILLIGRAM DAILY;
     Route: 048
     Dates: start: 20150103

REACTIONS (10)
  - Pyrexia [Fatal]
  - Oliguria [Fatal]
  - Pneumonia influenzal [Fatal]
  - Pancytopenia [Fatal]
  - Constipation [Fatal]
  - Respiratory failure [Fatal]
  - Dehydration [Fatal]
  - Septic shock [Fatal]
  - Acute kidney injury [Fatal]
  - Multiple organ dysfunction syndrome [Fatal]

NARRATIVE: CASE EVENT DATE: 201602
